FAERS Safety Report 4587873-7 (Version None)
Quarter: 2005Q1

REPORT INFORMATION
  Report Type: 
  Country: None (occurrence: None)
  Receive Date: 20050125
  Receipt Date: 20040827
  Transmission Date: 20050727
  Serious: No
  Sender: FDA-Public Use
  Company Number: USA040977068

PATIENT
  Sex: Male

DRUGS (10)
  1. FORTEO [Suspect]
     Indication: OSTEOPOROSIS
     Dates: start: 20040827, end: 20040827
  2. NOVOLIN N (INSULIN HUMAN INJECITON, ISOPHANE) [Concomitant]
  3. NOVOLIN R [Concomitant]
  4. PREDNISONE [Concomitant]
  5. NEORAL [Concomitant]
  6. CELLCEPT [Concomitant]
  7. DOXAZOSIN [Concomitant]
  8. ATENOLOL [Concomitant]
  9. CLONIDINE [Concomitant]
  10. PRAVACHOL [Concomitant]

REACTIONS (2)
  - FEELING ABNORMAL [None]
  - MYALGIA [None]
